FAERS Safety Report 9517850 (Version 1)
Quarter: 2013Q3

REPORT INFORMATION
  Report Type: Spontaneous
  Country: US (occurrence: None)
  Receive Date: 20130910
  Receipt Date: 20130910
  Transmission Date: 20140515
  Serious: No
  Sender: FDA-Public Use
  Company Number: None

PATIENT
  Age: 72 Year
  Sex: Male
  Weight: 63.5 kg

DRUGS (6)
  1. LUNESTA [Suspect]
     Indication: INSOMNIA
     Route: 048
     Dates: start: 201203, end: 201304
  2. RAMIPRIL [Concomitant]
  3. ALLOPURINOL [Concomitant]
  4. GUENFACINE [Concomitant]
  5. VIT D [Concomitant]
  6. FOLATE [Concomitant]

REACTIONS (10)
  - Alcohol use [None]
  - Idiosyncratic drug reaction [None]
  - Psychomotor hyperactivity [None]
  - Obsessive-compulsive disorder [None]
  - Stereotypy [None]
  - Hyperphagia [None]
  - Physical abuse [None]
  - Amnesia [None]
  - Blood alcohol increased [None]
  - Impaired work ability [None]
